FAERS Safety Report 13418894 (Version 3)
Quarter: 2017Q4

REPORT INFORMATION
  Report Type: Report from Study
  Country: None (occurrence: GB)
  Receive Date: 20170407
  Receipt Date: 20171103
  Transmission Date: 20180320
  Serious: Yes (Hospitalization, Other)
  Sender: FDA-Public Use
  Company Number: GB-ABBVIE-17K-167-1827719-00

PATIENT
  Sex: Male

DRUGS (1)
  1. HUMIRA [Suspect]
     Active Substance: ADALIMUMAB
     Indication: ANKYLOSING SPONDYLITIS
     Route: 058
     Dates: end: 2016

REACTIONS (4)
  - Kidney infection [Unknown]
  - Wound infection [Recovering/Resolving]
  - Renal haemorrhage [Recovering/Resolving]
  - Nephrolithiasis [Recovering/Resolving]
